FAERS Safety Report 21985127 (Version 1)
Quarter: 2023Q1

REPORT INFORMATION
  Report Type: Spontaneous
  Country: SE (occurrence: SE)
  Receive Date: 20230213
  Receipt Date: 20230213
  Transmission Date: 20230417
  Serious: Yes (Other)
  Sender: FDA-Public Use
  Company Number: None

PATIENT
  Age: 24 Year
  Sex: Female
  Weight: 65 kg

DRUGS (2)
  1. DROSPIRENONE [Suspect]
     Active Substance: DROSPIRENONE
     Indication: Heavy menstrual bleeding
     Dosage: 4 MILLIGRAM, QD
     Route: 048
     Dates: start: 20211023, end: 20211026
  2. LAMICTAL [Concomitant]
     Active Substance: LAMOTRIGINE
     Dosage: 250 MILLIGRAM, QD
     Route: 048
     Dates: start: 20180601, end: 20211028

REACTIONS (2)
  - Dyspnoea [Recovered/Resolved]
  - Pharyngeal swelling [Recovered/Resolved]

NARRATIVE: CASE EVENT DATE: 20211023
